FAERS Safety Report 4819895-2 (Version None)
Quarter: 2005Q4

REPORT INFORMATION
  Report Type: 
  Country: None (occurrence: None)
  Receive Date: 20051103
  Receipt Date: 20050719
  Transmission Date: 20060501
  Serious: Yes (Hospitalization)
  Sender: FDA-Public Use
  Company Number: US-MERCK-0507USA03132

PATIENT
  Age: 67 Year
  Sex: Male
  Weight: 105 kg

DRUGS (9)
  1. VIOXX [Suspect]
     Indication: ARTHRITIS
     Route: 048
     Dates: start: 20000212, end: 20030115
  2. VIOXX [Suspect]
     Route: 048
     Dates: start: 20000210, end: 20000212
  3. CEPHALEXIN [Concomitant]
     Indication: BACTERIAL INFECTION
     Route: 065
     Dates: start: 19980928
  4. ZESTORETIC [Concomitant]
     Indication: HYPERTENSION
     Route: 065
     Dates: start: 19980326
  5. LESCOL [Concomitant]
     Indication: BLOOD CHOLESTEROL INCREASED
     Route: 048
     Dates: start: 19980326
  6. HYDROCODONE BITARTRATE + ACETAMINOPHEN [Concomitant]
     Route: 065
     Dates: start: 19980807
  7. AMITRIPTYLIN [Concomitant]
     Route: 065
  8. BACTROBAN [Concomitant]
     Route: 065
  9. PRINZIDE [Concomitant]
     Route: 065

REACTIONS (12)
  - ACTINIC KERATOSIS [None]
  - CAROTID ARTERY OCCLUSION [None]
  - DEEP VEIN THROMBOSIS [None]
  - DERMAL CYST [None]
  - HYPOAESTHESIA [None]
  - LEG AMPUTATION [None]
  - NEUROPATHY PERIPHERAL [None]
  - OEDEMA [None]
  - PERIPHERAL VASCULAR DISORDER [None]
  - PHANTOM PAIN [None]
  - PROSTATE CANCER [None]
  - SEBORRHOEIC KERATOSIS [None]
